FAERS Safety Report 6190246-7 (Version None)
Quarter: 2009Q2

REPORT INFORMATION
  Report Type: 
  Country: None (occurrence: None)
  Receive Date: 20090514
  Receipt Date: 20090512
  Transmission Date: 20091009
  Serious: Yes (Life-Threatening, Hospitalization)
  Sender: FDA-Public Use
  Company Number: DE-ABBOTT-09P-062-0559582-00

PATIENT
  Sex: Female
  Weight: 73 kg

DRUGS (5)
  1. REDUCTIL [Suspect]
     Indication: WEIGHT CONTROL
     Dates: start: 20081016, end: 20090216
  2. REDUCTIL [Suspect]
     Dates: start: 20090217, end: 20090220
  3. INSULIN [Suspect]
     Indication: DIABETES MELLITUS
     Route: 050
  4. INSULIN [Suspect]
  5. EFEROX [Concomitant]
     Indication: HYPOTHYROIDISM

REACTIONS (3)
  - HYPOGLYCAEMIA [None]
  - INTENTIONAL OVERDOSE [None]
  - SUICIDE ATTEMPT [None]
